FAERS Safety Report 7829115-2 (Version None)
Quarter: 2011Q4

REPORT INFORMATION
  Report Type: 
  Country: None (occurrence: None)
  Receive Date: 20111020
  Receipt Date: 20111007
  Transmission Date: 20120403
  Serious: Yes (Other)
  Sender: FDA-Public Use
  Company Number: PHHY2011AU89676

PATIENT
  Age: 62 Year
  Sex: Male

DRUGS (3)
  1. MYFORTIC [Suspect]
     Indication: RENAL TRANSPLANT
     Dosage: 720 MG, DAILY
  2. PREDNISOLONE [Concomitant]
     Indication: IMMUNOSUPPRESSION
  3. TACROLIMUS [Concomitant]
     Indication: IMMUNOSUPPRESSION
     Dosage: 5 MG, BID

REACTIONS (11)
  - PAIN [None]
  - JOINT SWELLING [None]
  - STAPHYLOCOCCAL BACTERAEMIA [None]
  - KIDNEY TRANSPLANT REJECTION [None]
  - LIGAMENT SPRAIN [None]
  - ARTHRITIS BACTERIAL [None]
  - TACHYCARDIA [None]
  - HYPOTENSION [None]
  - DELIRIUM [None]
  - PYREXIA [None]
  - HAEMARTHROSIS [None]
